FAERS Safety Report 7808519-8 (Version None)
Quarter: 2011Q4

REPORT INFORMATION
  Report Type: 
  Country: None (occurrence: None)
  Receive Date: 20111012
  Receipt Date: 20111003
  Transmission Date: 20120403
  Serious: Yes (Life-Threatening, Hospitalization)
  Sender: FDA-Public Use
  Company Number: FR-JNJFOC-20110903874

PATIENT
  Sex: Female

DRUGS (5)
  1. LEXOMIL [Suspect]
     Indication: SUICIDE ATTEMPT
     Route: 048
     Dates: start: 20110823, end: 20110823
  2. ACETAMINOPHEN AND CODEINE PHOSPHATE [Suspect]
     Indication: SUICIDE ATTEMPT
     Dosage: 8 TABLETS
     Route: 048
     Dates: start: 20110823, end: 20110823
  3. ALCOHOL [Suspect]
     Indication: SUICIDE ATTEMPT
     Route: 065
     Dates: start: 20110823, end: 20110823
  4. ACETAMINOPHEN AND TRAMADOL HCL [Suspect]
     Indication: SUICIDE ATTEMPT
     Dosage: 70 DF ONCE
     Route: 048
     Dates: start: 20110823, end: 20110823
  5. ZOLPIDEM [Suspect]
     Indication: SUICIDE ATTEMPT
     Dosage: 14 DOSES ONCE
     Route: 048
     Dates: start: 20110823, end: 20110823

REACTIONS (12)
  - SOMNOLENCE [None]
  - LIVER INJURY [None]
  - CYTOMEGALOVIRUS TEST POSITIVE [None]
  - LOSS OF CONSCIOUSNESS [None]
  - NERVE COMPRESSION [None]
  - RUBELLA ANTIBODY POSITIVE [None]
  - SUICIDE ATTEMPT [None]
  - HEPATIC ENCEPHALOPATHY [None]
  - RHABDOMYOLYSIS [None]
  - PROTHROMBIN LEVEL DECREASED [None]
  - MULTIPLE DRUG OVERDOSE INTENTIONAL [None]
  - EPSTEIN-BARR VIRUS TEST POSITIVE [None]
